FAERS Safety Report 20738621 (Version 1)
Quarter: 2022Q2

REPORT INFORMATION
  Report Type: Spontaneous
  Country: FI (occurrence: FI)
  Receive Date: 20220422
  Receipt Date: 20220422
  Transmission Date: 20220721
  Serious: Yes (Other)
  Sender: FDA-Public Use
  Company Number: FI-002147023-NVSC2022FI079416

PATIENT
  Age: 28 Year
  Sex: Male

DRUGS (1)
  1. DASATINIB [Suspect]
     Active Substance: DASATINIB
     Indication: Acute lymphocytic leukaemia
     Dosage: UNK
     Route: 065

REACTIONS (17)
  - Varicella zoster virus infection [Unknown]
  - Cytopenia [Unknown]
  - Enterobacter infection [Unknown]
  - Pneumocystis jirovecii pneumonia [Unknown]
  - Immunosuppression [Unknown]
  - COVID-19 [Unknown]
  - Klebsiella sepsis [Unknown]
  - Staphylococcal sepsis [Unknown]
  - Aspergillus infection [Unknown]
  - Acute lymphocytic leukaemia recurrent [Unknown]
  - Cytomegalovirus infection [Unknown]
  - Hypogammaglobulinaemia [Unknown]
  - Leukaemia recurrent [Unknown]
  - Diarrhoea [Unknown]
  - Graft versus host disease in gastrointestinal tract [Unknown]
  - Headache [Unknown]
  - Tumour marker increased [Unknown]

NARRATIVE: CASE EVENT DATE: 20210401
